FAERS Safety Report 5369640-X (Version None)
Quarter: 2007Q2

REPORT INFORMATION
  Report Type: 
  Country: None (occurrence: None)
  Receive Date: 20070625
  Receipt Date: 20070613
  Transmission Date: 20071010
  Serious: Yes (Hospitalization)
  Sender: FDA-Public Use
  Company Number: CZ-PFIZER INC-2007042524

PATIENT
  Sex: Male
  Weight: 70 kg

DRUGS (1)
  1. SU-011,248 [Suspect]

REACTIONS (1)
  - CARDIAC TAMPONADE [None]
